FAERS Safety Report 6488457-6 (Version None)
Quarter: 2009Q4

REPORT INFORMATION
  Report Type: 
  Country: None (occurrence: None)
  Receive Date: 20091207
  Receipt Date: 20091130
  Transmission Date: 20100525
  Serious: Yes (Death)
  Sender: FDA-Public Use
  Company Number: 2009029312

PATIENT
  Age: 65 Year
  Sex: Female
  Weight: 57 kg

DRUGS (5)
  1. EFFENTORA (TABLET) [Suspect]
     Indication: CANCER PAIN
     Dosage: 800 MCG, BU, 400 MCG, BU
     Route: 002
     Dates: start: 20090824, end: 20090101
  2. EFFENTORA (TABLET) [Suspect]
     Indication: CANCER PAIN
     Dosage: 800 MCG, BU, 400 MCG, BU
     Route: 002
     Dates: start: 20090101
  3. FENTANYL CITRATE [Concomitant]
  4. HYDROMORPHON (HYDROMORPHONE) [Concomitant]
  5. DIAZEPAM [Concomitant]

REACTIONS (2)
  - MALIGNANT NEOPLASM PROGRESSION [None]
  - PANCREATIC CARCINOMA [None]
